FAERS Safety Report 5845014-X (Version None)
Quarter: 2008Q3

REPORT INFORMATION
  Report Type: 
  Country: None (occurrence: None)
  Receive Date: 20080813
  Receipt Date: 20080813
  Transmission Date: 20090109
  Serious: Yes (Life-Threatening, Disabling, Other)
  Sender: FDA-Public Use
  Company Number: None

PATIENT
  Age: 68 Year
  Sex: Female
  Weight: 54.4316 kg

DRUGS (1)
  1. CELLCEPT [Suspect]
     Indication: IMMUNE SYSTEM DISORDER
     Dosage: TWO TABS TWICE A DAY PO
     Route: 048
     Dates: start: 20060814, end: 20080801

REACTIONS (2)
  - COLON CANCER [None]
  - METASTASES TO LYMPH NODES [None]
